FAERS Safety Report 13678715 (Version 1)
Quarter: 2017Q2

REPORT INFORMATION
  Report Type: Spontaneous
  Country: US (occurrence: US)
  Receive Date: 20170622
  Receipt Date: 20170622
  Transmission Date: 20170830
  Serious: No
  Sender: FDA-Public Use
  Company Number: US-SA-2017SA057632

PATIENT
  Age: 48 Year
  Sex: Male

DRUGS (3)
  1. PREDNISOLONE. [Concomitant]
     Active Substance: PREDNISOLONE
     Route: 047
     Dates: start: 2017, end: 2017
  2. PREDNISOLONE. [Concomitant]
     Active Substance: PREDNISOLONE
     Route: 047
     Dates: start: 2017
  3. CEREZYME [Suspect]
     Active Substance: IMIGLUCERASE
     Indication: GAUCHER^S DISEASE
     Dosage: DOSE:5400 UNIT(S)
     Route: 041
     Dates: start: 2017

REACTIONS (1)
  - Corneal thinning [Not Recovered/Not Resolved]

NARRATIVE: CASE EVENT DATE: 2017
